FAERS Safety Report 10141104 (Version 1)
Quarter: 2014Q2

REPORT INFORMATION
  Report Type: Spontaneous
  Country: US (occurrence: US)
  Receive Date: 20140429
  Receipt Date: 20140429
  Transmission Date: 20141212
  Serious: No
  Sender: FDA-Public Use
  Company Number: US-BAYER-2014-062158

PATIENT
  Age: 53 Year
  Sex: Female

DRUGS (1)
  1. CLIMARA [Suspect]
     Indication: HORMONE REPLACEMENT THERAPY
     Dosage: UNK
     Route: 062
     Dates: start: 2005

REACTIONS (5)
  - Feeling abnormal [None]
  - Hot flush [None]
  - Mood altered [None]
  - Product adhesion issue [None]
  - Expired product administered [None]
